FAERS Safety Report 6157793-5 (Version None)
Quarter: 2009Q2

REPORT INFORMATION
  Report Type: 
  Country: None (occurrence: None)
  Receive Date: 20090407
  Receipt Date: 20090327
  Transmission Date: 20091009
  Serious: Yes (Hospitalization)
  Sender: FDA-Public Use
  Company Number: THYM--1000988

PATIENT

DRUGS (1)
  1. THYMOGLOBULIN [Suspect]
     Indication: PROPHYLAXIS AGAINST TRANSPLANT REJECTION
     Dosage: 5 MG/KG, QD, INTRAVENOUS
     Route: 042

REACTIONS (1)
  - TRANSPLANT REJECTION [None]
